FAERS Safety Report 12256892 (Version 1)
Quarter: 2016Q2

REPORT INFORMATION
  Report Type: Spontaneous
  Country: US (occurrence: US)
  Receive Date: 20160412
  Receipt Date: 20160412
  Transmission Date: 20160815
  Serious: Yes (Other)
  Sender: FDA-Public Use
  Company Number: US-GLAXOSMITHKLINE-US2016GSK044036

PATIENT
  Sex: Female
  Weight: 69.39 kg

DRUGS (8)
  1. NEURONTIN [Suspect]
     Active Substance: GABAPENTIN
     Indication: SEIZURE
  2. LAMICTAL XR [Suspect]
     Active Substance: LAMOTRIGINE
     Indication: SEIZURE
  3. IBUPROFEN. [Suspect]
     Active Substance: IBUPROFEN
     Indication: PRODUCT USED FOR UNKNOWN INDICATION
  4. TEGRETOL [Suspect]
     Active Substance: CARBAMAZEPINE
     Indication: PRODUCT USED FOR UNKNOWN INDICATION
  5. LAMOTRIGINE. [Suspect]
     Active Substance: LAMOTRIGINE
     Indication: COMPLEX PARTIAL SEIZURES
     Dosage: 150 MG, BID
  6. CARBAMAZEPINE. [Suspect]
     Active Substance: CARBAMAZEPINE
     Indication: PRODUCT USED FOR UNKNOWN INDICATION
  7. LAMICTAL XR [Suspect]
     Active Substance: LAMOTRIGINE
     Indication: EPILEPSY
     Dosage: 100 MG, BID
     Route: 048
     Dates: start: 20151013
  8. DOCUSATE SODIUM + YELLOW PHENOLPHTHALEIN [Concomitant]

REACTIONS (15)
  - Aura [Unknown]
  - Chest discomfort [Recovered/Resolved]
  - Drug hypersensitivity [Unknown]
  - Dizziness [Unknown]
  - Seizure [Unknown]
  - Treatment noncompliance [Unknown]
  - Loss of consciousness [Unknown]
  - Ill-defined disorder [Recovered/Resolved]
  - Partial seizures [Unknown]
  - Insomnia [Unknown]
  - Circadian rhythm sleep disorder [Unknown]
  - Confusional state [Unknown]
  - Drug ineffective [Unknown]
  - Inability to afford medication [Unknown]
  - Adverse drug reaction [Unknown]
